FAERS Safety Report 15240288 (Version 1)
Quarter: 2018Q4

REPORT INFORMATION
  Report Type: Spontaneous
  Country: IT (occurrence: IT)
  Receive Date: 20180804
  Receipt Date: 20180804
  Transmission Date: 20190204
  Serious: Yes (Life-Threatening, Other)
  Sender: FDA-Public Use
  Company Number: IT-AUROBINDO-AUR-APL-2013-04101

PATIENT
  Age: 23 Year
  Sex: Female

DRUGS (5)
  1. CLOTIAZEPAM [Suspect]
     Active Substance: CLOTIAZEPAM
     Indication: DEPRESSION
     Dosage: 20 ML, SINGLE ; IN TOTAL
     Route: 048
     Dates: start: 20130416, end: 20130416
  2. LAROXYL [Suspect]
     Active Substance: AMITRIPTYLINE HYDROCHLORIDE
     Indication: DEPRESSION
     Dosage: 20 ML AT 40MG/ML, SINGLE ; IN TOTAL
     Route: 048
     Dates: start: 20130416, end: 20130416
  3. CITALOPRAM [Suspect]
     Active Substance: CITALOPRAM HYDROBROMIDE
     Indication: DEPRESSION
     Dosage: 15 ML, SINGLE ; IN TOTAL
     Route: 048
  4. RIVOTRIL [Suspect]
     Active Substance: CLONAZEPAM
     Indication: EPILEPSY
     Dosage: 10 ML AT 2.5 MG/ML, SINGLE ; IN TOTAL
     Route: 048
     Dates: start: 20130416, end: 20130416
  5. CITALOPRAM ORAL DROPS [Suspect]
     Active Substance: CITALOPRAM HYDROBROMIDE
     Indication: DEPRESSION
     Dosage: 15 ML,TOTAL,
     Route: 048
     Dates: start: 20130416, end: 20130416

REACTIONS (4)
  - Suicide attempt [Recovered/Resolved]
  - Coma [Recovered/Resolved]
  - Toxicity to various agents [Recovered/Resolved]
  - Intentional overdose [Recovered/Resolved]

NARRATIVE: CASE EVENT DATE: 20130416
